FAERS Safety Report 25660965 (Version 1)
Quarter: 2025Q3

REPORT INFORMATION
  Report Type: Spontaneous
  Country: US (occurrence: None)
  Receive Date: 20250807
  Receipt Date: 20250807
  Transmission Date: 20251021
  Serious: No
  Sender: FDA-CTU
  Company Number: None

PATIENT
  Sex: Female

DRUGS (2)
  1. LORAZEPAM [Suspect]
     Active Substance: LORAZEPAM
  2. INVEGA [Suspect]
     Active Substance: PALIPERIDONE

REACTIONS (3)
  - Illness [None]
  - Nausea [None]
  - Muscle spasms [None]
